FAERS Safety Report 5389966-3 (Version None)
Quarter: 2007Q3

REPORT INFORMATION
  Report Type: 
  Country: None (occurrence: None)
  Receive Date: 20070716
  Receipt Date: 20070716
  Transmission Date: 20080115
  Serious: No
  Sender: FDA-Public Use
  Company Number: None

PATIENT
  Age: 46 Year
  Sex: Female
  Weight: 75.2971 kg

DRUGS (1)
  1. BEVACIZUMAB 25MG/ML GENENTECH [Suspect]
     Indication: LUNG CANCER METASTATIC
     Dosage: 1200MG, 1175MG, 1125MG
     Dates: start: 20070511, end: 20070622

REACTIONS (6)
  - ASTHENIA [None]
  - DIZZINESS [None]
  - HEADACHE [None]
  - NAUSEA [None]
  - ORAL INTAKE REDUCED [None]
  - REVERSIBLE POSTERIOR LEUKOENCEPHALOPATHY SYNDROME [None]
